FAERS Safety Report 4290949-5 (Version None)
Quarter: 2004Q1

REPORT INFORMATION
  Report Type: 
  Country: None (occurrence: None)
  Receive Date: 20040211
  Receipt Date: 20031017
  Transmission Date: 20041129
  Serious: No
  Sender: FDA-Public Use
  Company Number: US-GLAXOSMITHKLINE-A0430686A

PATIENT
  Age: 38 Year
  Sex: Female

DRUGS (3)
  1. PAXIL [Suspect]
     Indication: DEPRESSION
     Dosage: 15MG PER DAY
     Route: 048
     Dates: start: 20031013
  2. EGLONYL [Concomitant]
     Indication: POSTPARTUM DEPRESSION
  3. ALPRAZOLAM [Concomitant]

REACTIONS (1)
  - DEPRESSION [None]
